FAERS Safety Report 4849681-9 (Version None)
Quarter: 2005Q4

REPORT INFORMATION
  Report Type: 
  Country: None (occurrence: None)
  Receive Date: 20051115
  Receipt Date: 20050824
  Transmission Date: 20060501
  Serious: Yes (Life-Threatening, Hospitalization)
  Sender: FDA-Public Use
  Company Number: 407335

PATIENT
  Sex: Male
  Weight: 77 kg

DRUGS (10)
  1. PEGASYS [Suspect]
     Indication: HEPATITIS C
     Dosage: 180 MCG 1 PER WEEK SUBCUTANEOUS
     Route: 058
     Dates: start: 20041228, end: 20050401
  2. RIBASPHERE [Suspect]
     Indication: HEPATITIS C
     Dosage: 1000 MG DAILY ORAL
     Route: 048
     Dates: start: 20041228, end: 20050401
  3. APAP (ACETAMINOPHEN) [Concomitant]
  4. ABILIFY [Concomitant]
  5. ASPIRIN [Concomitant]
  6. BUPROPION HCL [Concomitant]
  7. CYANOCOBALAMIN [Concomitant]
  8. BENADRYL (*ACRIVASTINE/*AMMONIUM CHLORIDE/*DIPHENHYDRAMINE HYDROCHLORI [Concomitant]
  9. PROXEN (NAPROXEN) [Concomitant]
  10. MVI (MULTIVITAMINS NOS) [Concomitant]

REACTIONS (6)
  - HAEMATOCRIT DECREASED [None]
  - HAEMOGLOBIN DECREASED [None]
  - NEUTROPHIL COUNT DECREASED [None]
  - RED BLOOD CELL COUNT DECREASED [None]
  - THROMBOCYTOPENIA [None]
  - WHITE BLOOD CELL COUNT DECREASED [None]
